FAERS Safety Report 25735924 (Version 1)
Quarter: 2025Q3

REPORT INFORMATION
  Report Type: Spontaneous
  Country: US (occurrence: None)
  Receive Date: 20250828
  Receipt Date: 20250828
  Transmission Date: 20251020
  Serious: Yes (Other)
  Sender: FDA-CTU
  Company Number: None

PATIENT
  Age: 62 Year
  Sex: Male

DRUGS (9)
  1. RINVOQ [Suspect]
     Active Substance: UPADACITINIB
     Indication: Essential hypertension
     Dosage: FREQUENCY : DAILY;?
     Route: 048
     Dates: start: 20220215
  2. AML0DIPINE P0WBESYLATE [Concomitant]
  3. DEXAMETH PHO INJ 20MG/5ML [Concomitant]
  4. GABAPENTIN [Concomitant]
     Active Substance: GABAPENTIN
  5. HYDR0XYCHL0R TAB 200MG [Concomitant]
  6. LEFLUN0MIDE TAB 10MG [Concomitant]
  7. LISIN0PRIL TAB 20MG [Concomitant]
  8. 0XYC0D0NE TAB5MG [Concomitant]
  9. PREDNISONE [Concomitant]
     Active Substance: PREDNISONE

REACTIONS (1)
  - Spinal operation [None]

NARRATIVE: CASE EVENT DATE: 20250602
